FAERS Safety Report 7393391-3 (Version None)
Quarter: 2011Q2

REPORT INFORMATION
  Report Type: 
  Country: None (occurrence: None)
  Receive Date: 20110405
  Receipt Date: 20110323
  Transmission Date: 20111010
  Serious: Yes (Other)
  Sender: FDA-Public Use
  Company Number: PT-AMGEN-PRTSP2010011722

PATIENT
  Age: 54 Year
  Sex: Male

DRUGS (8)
  1. SIMVASTATIN [Concomitant]
     Dosage: 40 MG, 1X/DAY
  2. ASPIRIN [Concomitant]
     Dosage: 100 MG, 1X/DAY
  3. LISINOPRIL [Concomitant]
     Dosage: 20 MG, 1X/DAY
  4. IDEOS                              /00944201/ [Concomitant]
     Dosage: 500 MG / 400 UI, 1XDAY
  5. ENBREL [Suspect]
     Indication: RHEUMATOID ARTHRITIS
     Dosage: 50 MG, WEEKLY
     Dates: start: 20100201
  6. OMEPRAZOLE [Concomitant]
     Dosage: 20 MG, 1X/DAY
  7. ALLOPURINOL [Concomitant]
     Dosage: 300 MG, 1X/DAY
  8. TRAMADOL [Concomitant]
     Dosage: 50 MG, 2X/DAY

REACTIONS (1)
  - ANGINA PECTORIS [None]
